FAERS Safety Report 17147736 (Version 1)
Quarter: 2019Q4

REPORT INFORMATION
  Report Type: Report from Study
  Country: GB (occurrence: GB)
  Receive Date: 20191212
  Receipt Date: 20191212
  Transmission Date: 20200122
  Serious: Yes (Hospitalization, Other)
  Sender: FDA-Public Use
  Company Number: GB-BAUSCH-BL-2019-064678

PATIENT
  Age: 7 Year
  Sex: Female
  Weight: 23 kg

DRUGS (6)
  1. RANITIDINE. [Suspect]
     Active Substance: RANITIDINE
     Indication: GASTROOESOPHAGEAL REFLUX DISEASE
     Dosage: UNK
     Route: 065
  2. LANSOPRAZOLE. [Concomitant]
     Active Substance: LANSOPRAZOLE
     Indication: PRODUCT USED FOR UNKNOWN INDICATION
     Route: 065
  3. DEXAMETHASONE. [Suspect]
     Active Substance: DEXAMETHASONE
     Indication: PRODUCT USED FOR UNKNOWN INDICATION
     Route: 065
  4. VANDETANIB. [Suspect]
     Active Substance: VANDETANIB
     Indication: BRAIN STEM GLIOMA
     Route: 048
     Dates: start: 20191009
  5. EVEROLIMUS. [Suspect]
     Active Substance: EVEROLIMUS
     Indication: BRAIN STEM GLIOMA
     Dosage: 5 MG MONDAY/WEDNESDAY/FRIDAY AND 2.5 MG TUESDAY/THURSDAY/SATURDAY/SUNDAY
     Route: 048
  6. EVEROLIMUS. [Suspect]
     Active Substance: EVEROLIMUS
     Dosage: 5 MG MONDAY TO SATURDAY AND 2.5 MG SUNDAY
     Route: 048
     Dates: start: 20190717

REACTIONS (20)
  - Electrocardiogram QT prolonged [Recovered/Resolved]
  - Mucosal inflammation [Recovered/Resolved]
  - Facial paralysis [Recovered/Resolved]
  - Blood creatinine increased [Unknown]
  - Abdominal distension [Recovered/Resolved]
  - Neutrophil count decreased [Recovered/Resolved]
  - Hypophagia [Not Recovered/Not Resolved]
  - Hypophosphataemia [Recovered/Resolved]
  - Flatulence [Recovered/Resolved]
  - Hemiparesis [Recovered/Resolved]
  - Ocular hyperaemia [Recovered/Resolved]
  - Blood cholesterol increased [Unknown]
  - Blood cholesterol increased [Recovered/Resolved]
  - Myoclonus [Unknown]
  - Neutrophil count decreased [Not Recovered/Not Resolved]
  - Ataxia [Recovered/Resolved]
  - Gastrooesophageal reflux disease [Recovered/Resolved]
  - Blood triglycerides increased [Unknown]
  - Alanine aminotransferase increased [Unknown]
  - Lymphocyte count decreased [Not Recovered/Not Resolved]

NARRATIVE: CASE EVENT DATE: 20190111
